FAERS Safety Report 4320414-8 (Version None)
Quarter: 2004Q1

REPORT INFORMATION
  Report Type: 
  Country: None (occurrence: None)
  Receive Date: 20040319
  Receipt Date: 20040319
  Transmission Date: 20041129
  Serious: Yes (Hospitalization)
  Sender: FDA-Public Use
  Company Number: None

PATIENT
  Age: 43 Year
  Sex: Female
  Weight: 65.8 kg

DRUGS (5)
  1. ADRIAMYCIN (DOXORUBICIN) [Suspect]
     Indication: BREAST CANCER
     Dosage: 102 MG , 14 DAYS IV
     Route: 042
     Dates: start: 20040206
  2. CYTOXAN [Suspect]
     Indication: BREAST CANCER
     Dosage: 1020 MG , 14 DAYS IV
     Route: 042
     Dates: start: 20040206
  3. ZOFRAN [Concomitant]
  4. DECADRON [Concomitant]
  5. PEGFILGRASTIM [Concomitant]

REACTIONS (3)
  - AXILLARY PAIN [None]
  - BODY TEMPERATURE INCREASED [None]
  - CELLULITIS [None]
